FAERS Safety Report 10567053 (Version 1)
Quarter: 2014Q4

REPORT INFORMATION
  Report Type: Spontaneous
  Country: US (occurrence: US)
  Receive Date: 20141105
  Receipt Date: 20141105
  Transmission Date: 20150529
  Serious: Yes (Congenital Anomaly, Other)
  Sender: FDA-Public Use
  Company Number: US-ABBVIE-14P-163-1302312-00

PATIENT
  Sex: Male

DRUGS (1)
  1. DEPAKOTE [Suspect]
     Active Substance: DIVALPROEX SODIUM
     Indication: MATERNAL EXPOSURE TIMING UNSPECIFIED
     Route: 064

REACTIONS (15)
  - Asperger^s disorder [Unknown]
  - Attention deficit/hyperactivity disorder [Unknown]
  - Anxiety [Unknown]
  - Illiteracy [Unknown]
  - Cognitive disorder [Unknown]
  - Oppositional defiant disorder [Unknown]
  - Speech disorder [Unknown]
  - Pain [Unknown]
  - Abnormal behaviour [Unknown]
  - Developmental delay [Unknown]
  - Emotional distress [Unknown]
  - Foetal exposure during pregnancy [Unknown]
  - Autism [Unknown]
  - Injury [Unknown]
  - Anhedonia [Unknown]
